FAERS Safety Report 22000942 (Version 1)
Quarter: 2023Q1

REPORT INFORMATION
  Report Type: Spontaneous
  Country: ES (occurrence: ES)
  Receive Date: 20230216
  Receipt Date: 20230216
  Transmission Date: 20230418
  Serious: Yes (Death, Other)
  Sender: FDA-Public Use
  Company Number: ES-GILEAD-2023-0616590

PATIENT
  Age: 44 Year
  Sex: Male

DRUGS (8)
  1. YESCARTA [Suspect]
     Active Substance: AXICABTAGENE CILOLEUCEL
     Indication: Non-Hodgkin^s lymphoma
     Dosage: UNK
     Route: 065
     Dates: start: 20220324, end: 20220324
  2. CYCLOPHOSPHAMIDE [Concomitant]
     Active Substance: CYCLOPHOSPHAMIDE
  3. FLUDARABINE [Concomitant]
     Active Substance: FLUDARABINE PHOSPHATE
  4. GEMCITABINE [Concomitant]
     Active Substance: GEMCITABINE
  5. POLATUZUMAB VEDOTIN [Concomitant]
     Active Substance: POLATUZUMAB VEDOTIN
  6. RITUXIMAB [Concomitant]
     Active Substance: RITUXIMAB
  7. BENDAMUSTINE [Concomitant]
     Active Substance: BENDAMUSTINE
  8. OXALIPLATIN [Concomitant]
     Active Substance: OXALIPLATIN

REACTIONS (8)
  - Septic shock [Fatal]
  - Acute monocytic leukaemia [Unknown]
  - Diffuse large B-cell lymphoma [Unknown]
  - Cytokine release syndrome [Unknown]
  - Neurotoxicity [Unknown]
  - Haemorrhage [Unknown]
  - Neoplasm [Unknown]
  - Leukocytosis [Unknown]

NARRATIVE: CASE EVENT DATE: 20220614
